FAERS Safety Report 10195065 (Version 4)
Quarter: 2014Q2

REPORT INFORMATION
  Report Type: Report from Study
  Country: BE (occurrence: BE)
  Receive Date: 20140526
  Receipt Date: 20140629
  Transmission Date: 20141212
  Serious: Yes (Hospitalization)
  Sender: FDA-Public Use
  Company Number: PHHY2014BE058013

PATIENT
  Sex: Female

DRUGS (2)
  1. AFINITOR [Suspect]
     Indication: BREAST CANCER METASTATIC
     Dosage: 10 MG, QD
     Route: 048
     Dates: end: 20140609
  2. AFINITOR [Suspect]
     Dosage: 5 MG, UNK
     Route: 048
     Dates: start: 20140623

REACTIONS (9)
  - Fibrin D dimer increased [Unknown]
  - Pyrexia [Unknown]
  - Cough [Unknown]
  - Blood lactate dehydrogenase increased [Unknown]
  - Tumour marker increased [Unknown]
  - Mucosal inflammation [Recovering/Resolving]
  - Aphthous stomatitis [Recovering/Resolving]
  - Headache [Unknown]
  - Nausea [Unknown]
